FAERS Safety Report 20606671 (Version 3)
Quarter: 2022Q3

REPORT INFORMATION
  Report Type: Spontaneous
  Country: JP (occurrence: JP)
  Receive Date: 20220317
  Receipt Date: 20220715
  Transmission Date: 20221027
  Serious: No
  Sender: FDA-Public Use
  Company Number: JP-GLAXOSMITHKLINE-JP2022JPN044479

PATIENT

DRUGS (26)
  1. SOTROVIMAB [Suspect]
     Active Substance: SOTROVIMAB
     Indication: COVID-19
     Dosage: 500 MG, SINGLE
     Dates: start: 20220208
  2. VEKLURY [Suspect]
     Active Substance: REMDESIVIR
     Indication: COVID-19
     Dosage: 200 MG FOR THE FIRST DAY, 100 MG FOR THE SECOND AND THIRD DAY, DOSING NUMBER: 3
     Dates: start: 20220208, end: 20220210
  3. EQUA TABLETS [Concomitant]
     Dosage: 50 MG, QD, AFTER BREAKFAST
  4. VONOPRAZAN FUMARATE [Concomitant]
     Active Substance: VONOPRAZAN FUMARATE
     Dosage: 10 MG, QD, AFTER BREAKFAST
  5. LEVOTHYROXINE SODIUM [Concomitant]
     Active Substance: LEVOTHYROXINE SODIUM
     Dosage: 50 UG, QD, AFTER BREAKFAST
  6. E KEPPRA TABLETS [Concomitant]
     Dosage: 1000 MG, QD, AFTER BREAKFAST
  7. E KEPPRA TABLETS [Concomitant]
     Dosage: 500 MG, QD, AFTER LUNCH, (ACTUAL DAYS OF ADMINISTRATION) MON, WED, FRI, DIALYSIS DAYS
  8. CARVEDILOL [Concomitant]
     Active Substance: CARVEDILOL
     Dosage: 10 MG, QD, AFTER BREAKFAST, (ACTUAL DAYS OF ADMINISTRATION) SUN, TUE, THURS, SAT, NON-DIALYSIS DAYS
  9. CARVEDILOL [Concomitant]
     Active Substance: CARVEDILOL
     Dosage: 10 MG, QD, AFTER DINNER
  10. EPINASTINE HYDROCHLORIDE TABLETS [Concomitant]
     Dosage: 20 MG, QD, AFTER DINNER
  11. NOBELZIN TABLETS [Concomitant]
     Dosage: 25 MG, QD, AFTER DINNER
  12. IRBESARTAN OD [Concomitant]
     Dosage: 200 MG, QD, AFTER DINNER
  13. EVOCALCET [Concomitant]
     Active Substance: EVOCALCET
     Dosage: 1 MG, QD, AFTER DINNER
  14. MIYA-BM [Concomitant]
     Active Substance: CLOSTRIDIUM BUTYRICUM SPORES STRAIN M-55
     Dosage: 1 DF, TID, AFTER BREAKFAST, LUNCH, AND DINNER
  15. ATARAX TABLET (HYDROXYZINE HYDROCHLORIDE) [Concomitant]
     Dosage: 10 MG, TID, AFTER BREAKFAST, LUNCH, AND DINNER
  16. PRECIPITATED CALCIUM CARBONATE TABLETS [Concomitant]
     Dosage: 500 MG, TID, AFTER BREAKFAST, LUNCH, AND DINNER
  17. AMITIZA CAPSULE [Concomitant]
     Dosage: 24 UG, QD, AFTER DINNER, IF WATERY STOOLS OCCURRED, REDUCE OR SKIP THE DOSE ON THE DAY
  18. FYCOMPA [Concomitant]
     Active Substance: PERAMPANEL
     Dosage: 4 MG, QD, BEFORE BEDTIME
  19. NALFURAFINE HYDROCHLORIDE OD [Concomitant]
     Dosage: 2.5 UG, QD, AFTER LUNCH
  20. LAGNOS NF [Concomitant]
     Dosage: 24 G, BID, AFTER BREAKFAST AND DINNER, SKIP IF DIARRHEA OCCURRED
  21. LICORICE ROOT EXTRACT\RHUBARB [Concomitant]
     Active Substance: LICORICE ROOT EXTRACT\RHUBARB
     Dosage: 1 DF, QD, BEFORE BEDTIME, (ACTUAL DAYS OF ADMINISTRATION) MON, WED, FRI, SAT
  22. LEVETIRACETAM [Concomitant]
     Active Substance: LEVETIRACETAM
     Dosage: 1000 MG, QD, AFTER BREAKFAST
  23. LEVETIRACETAM [Concomitant]
     Active Substance: LEVETIRACETAM
     Dosage: 500 MG, QD, AFTER LUNCH, (ACTUAL DAYS OF ADMINISTRATION)MON, WED, FRI, DIALYSIS DAYS
  24. TRESIBA [Concomitant]
     Active Substance: INSULIN DEGLUDEC
     Dosage: UNK, FOR INSULIN SCALE INDICATION
  25. APIDRA SOLOSTAR [Concomitant]
     Active Substance: INSULIN GLULISINE
     Dosage: UNK, FOR INSULIN SCALE INDICATION, SCALE INJECTION
  26. AZUNOL OINTMENT [Concomitant]
     Dosage: UNK, 1 TO SEVERAL TIMES A DAY, INCLUDING AROUND THE ANUS, PERINEUM, AND PERINEUM

REACTIONS (1)
  - Platelet count decreased [Recovered/Resolved]

NARRATIVE: CASE EVENT DATE: 20220214
